FAERS Safety Report 8877495 (Version 1)
Quarter: 2012Q4

REPORT INFORMATION
  Report Type: Report from Study
  Country: JP (occurrence: JP)
  Receive Date: 20121024
  Receipt Date: 20121024
  Transmission Date: 20130627
  Serious: Yes (Hospitalization)
  Sender: FDA-Public Use
  Company Number: JP-VERTEX PHARMACEUTICAL INC.-AE-2012-002867

PATIENT
  Age: 53 Year
  Sex: Female

DRUGS (6)
  1. VX-950 [Suspect]
     Indication: HEPATITIS C
     Dosage: 2250 mg, qd
     Route: 048
     Dates: start: 20120117, end: 20120123
  2. PEGINTERFERON [Suspect]
     Dosage: 1.5 ?g/kg, UNK
     Route: 051
     Dates: start: 20120117
  3. REBETOL [Suspect]
     Dosage: 600 mg, qd
     Route: 048
     Dates: start: 20120117, end: 20120207
  4. REBETOL [Suspect]
     Dosage: 400 mg, qd
     Route: 048
     Dates: start: 20120208
  5. TAKEPRON [Concomitant]
     Dosage: 15 mg, qd
     Route: 048
     Dates: start: 20120117
  6. URSO                               /00465701/ [Concomitant]
     Dosage: 900 mg, qd
     Route: 048

REACTIONS (3)
  - Rash [Recovered/Resolved]
  - Renal disorder [Recovered/Resolved]
  - Hyperuricaemia [Unknown]
